FAERS Safety Report 25110634 (Version 1)
Quarter: 2025Q1

REPORT INFORMATION
  Report Type: Spontaneous
  Country: IN (occurrence: IN)
  Receive Date: 20250324
  Receipt Date: 20250324
  Transmission Date: 20250409
  Serious: Yes (Other)
  Sender: ZYDUS PHARM
  Company Number: IN-CADILA HEALTHCARE LIMITED-IN-ZYDUS-120868

PATIENT

DRUGS (1)
  1. AZATHIOPRINE [Suspect]
     Active Substance: AZATHIOPRINE
     Indication: Vitiligo
     Route: 065

REACTIONS (3)
  - Hair disorder [Unknown]
  - Diffuse alopecia [Unknown]
  - Bicytopenia [Recovering/Resolving]
